FAERS Safety Report 5391392-8 (Version None)
Quarter: 2007Q3

REPORT INFORMATION
  Report Type: 
  Country: None (occurrence: None)
  Receive Date: 20070719
  Receipt Date: 20070716
  Transmission Date: 20080115
  Serious: Yes (Hospitalization)
  Sender: FDA-Public Use
  Company Number: BR-BRISTOL-MYERS SQUIBB COMPANY-13810957

PATIENT
  Sex: Female

DRUGS (1)
  1. IRBESARTAN [Suspect]
     Dates: start: 19980101

REACTIONS (2)
  - BLOOD PRESSURE INCREASED [None]
  - VENOUS OCCLUSION [None]
